FAERS Safety Report 23825583 (Version 1)
Quarter: 2024Q2

REPORT INFORMATION
  Report Type: Spontaneous
  Country: US (occurrence: US)
  Receive Date: 20240507
  Receipt Date: 20240507
  Transmission Date: 20240716
  Serious: No
  Sender: FDA-Public Use
  Company Number: US-HIKMA PHARMACEUTICALS USA INC.-US-H14001-23-68580

PATIENT

DRUGS (4)
  1. AMIKACIN SULFATE [Suspect]
     Active Substance: AMIKACIN SULFATE
     Indication: Product used for unknown indication
     Dosage: UNKNOWN
     Route: 042
  2. AZITHROMYCIN [Concomitant]
     Active Substance: AZITHROMYCIN
     Indication: Mycobacterium avium complex infection
     Dosage: 250 MILLIGRAM, DAILY
     Route: 065
  3. ETHAMBUTOL [Concomitant]
     Active Substance: ETHAMBUTOL HYDROCHLORIDE
     Indication: Mycobacterium avium complex infection
     Dosage: 1200 MILLIGRAM, DAILY
     Route: 065
  4. RIFAMPIN [Concomitant]
     Active Substance: RIFAMPIN
     Indication: Mycobacterium avium complex infection
     Dosage: 600 MILLIGRAM, DAILY
     Route: 065

REACTIONS (4)
  - Chest pain [Unknown]
  - Tinnitus [Unknown]
  - Paraesthesia [Unknown]
  - Dizziness [Unknown]
